FAERS Safety Report 5147703-1 (Version None)
Quarter: 2006Q3

REPORT INFORMATION
  Report Type: 
  Country: None (occurrence: None)
  Receive Date: 20060915
  Receipt Date: 20060725
  Transmission Date: 20061208
  Serious: No
  Sender: FDA-Public Use
  Company Number: 2006RL000274

PATIENT
  Age: 67 Year
  Sex: Female
  Weight: 72.5755 kg

DRUGS (3)
  1. OMACOR [Suspect]
     Indication: BLOOD TRIGLYCERIDES INCREASED
     Dosage: 4 G;QD;PO
     Route: 048
     Dates: start: 20060701, end: 20060724
  2. BLOOD PRESSURE [Concomitant]
  3. MEDICATION NOS [Concomitant]

REACTIONS (1)
  - GOUT [None]
